FAERS Safety Report 22115294 (Version 2)
Quarter: 2023Q1

REPORT INFORMATION
  Report Type: Spontaneous
  Country: US (occurrence: None)
  Receive Date: 20230320
  Receipt Date: 20230321
  Transmission Date: 20230417
  Serious: Yes (Other)
  Sender: FDA-Public Use
  Company Number: US-ROCHE-3309464

PATIENT
  Age: 46 Year
  Sex: Male

DRUGS (1)
  1. OCREVUS [Suspect]
     Active Substance: OCRELIZUMAB
     Indication: Multiple sclerosis
     Dosage: STRENGTH 300 MG/ 10ML ?ONGOING
     Route: 042
     Dates: start: 202204

REACTIONS (1)
  - Multiple sclerosis relapse [Unknown]
